FAERS Safety Report 13059953 (Version 2)
Quarter: 2017Q1

REPORT INFORMATION
  Report Type: Spontaneous
  Country: US (occurrence: US)
  Receive Date: 20161223
  Receipt Date: 20170118
  Transmission Date: 20170428
  Serious: Yes (Hospitalization, Other)
  Sender: FDA-Public Use
  Company Number: US-GILEAD-2016-0249917

PATIENT
  Age: 64 Year
  Sex: Male
  Weight: 53 kg

DRUGS (3)
  1. VIREAD [Suspect]
     Active Substance: TENOFOVIR DISOPROXIL FUMARATE
     Indication: COLON CANCER
     Dosage: 300 MG, BID
     Route: 065
     Dates: start: 201601, end: 201606
  2. RAPAMUNE [Suspect]
     Active Substance: SIROLIMUS
     Indication: LIVER TRANSPLANT
     Dosage: 1 MG, QD
     Route: 048
     Dates: start: 1999
  3. RAPAMUNE [Suspect]
     Active Substance: SIROLIMUS
     Dosage: 2 MG, QD
     Route: 048

REACTIONS (10)
  - Toxicity to various agents [Unknown]
  - Off label use [Not Recovered/Not Resolved]
  - Stoma site pain [Recovered/Resolved]
  - Drug dose omission [Not Recovered/Not Resolved]
  - Urinary tract infection [Recovered/Resolved]
  - Nausea [Unknown]
  - Internal haemorrhage [Recovered/Resolved]
  - Faeces discoloured [Unknown]
  - Vomiting [Unknown]
  - Abdominal pain [Unknown]

NARRATIVE: CASE EVENT DATE: 20160531
